FAERS Safety Report 12282220 (Version 2)
Quarter: 2016Q2

REPORT INFORMATION
  Report Type: Report from Study
  Country: KR (occurrence: KR)
  Receive Date: 20160419
  Receipt Date: 20160429
  Transmission Date: 20160815
  Serious: Yes (Hospitalization, Other)
  Sender: FDA-Public Use
  Company Number: KR-OTSUKA-2016_003824

PATIENT
  Age: 78 Year
  Sex: Female

DRUGS (4)
  1. CHOLINE ALFOSCERATE 400 [Concomitant]
     Indication: ISCHAEMIC STROKE
     Dosage: 800 MG, UNK
     Route: 048
     Dates: start: 20140225
  2. BLINDED CILOSTAZOL [Suspect]
     Active Substance: CILOSTAZOL
     Indication: CEREBRAL SMALL VESSEL ISCHAEMIC DISEASE
     Dosage: UNK
     Route: 048
     Dates: start: 20140318, end: 20160124
  3. DONEPEZIL. [Concomitant]
     Active Substance: DONEPEZIL
     Indication: DEMENTIA
     Dosage: 5 MG, UNK
     Route: 048
     Dates: start: 20151014
  4. BLINDED *ASPIRIN [Suspect]
     Active Substance: ASPIRIN
     Indication: CEREBRAL SMALL VESSEL ISCHAEMIC DISEASE
     Dosage: UNK
     Route: 048
     Dates: start: 20140318, end: 20160124

REACTIONS (2)
  - Pancreatic carcinoma [Unknown]
  - Gastric cancer [Not Recovered/Not Resolved]

NARRATIVE: CASE EVENT DATE: 20160124
